FAERS Safety Report 9479709 (Version 1)
Quarter: 2013Q3

REPORT INFORMATION
  Report Type: Spontaneous
  Country: US (occurrence: US)
  Receive Date: 20130828
  Receipt Date: 20130828
  Transmission Date: 20140515
  Serious: Yes (Hospitalization, Other)
  Sender: FDA-Public Use
  Company Number: US-AMGEN-KDL043084

PATIENT
  Sex: Female

DRUGS (2)
  1. ENBREL [Suspect]
     Indication: RHEUMATOID ARTHRITIS
     Dosage: 25 MG, 2 TIMES/WK
     Route: 058
     Dates: start: 19970101, end: 20000101
  2. REMICADE [Concomitant]

REACTIONS (4)
  - Breast cancer [Unknown]
  - Jaundice [Unknown]
  - Blood bilirubin increased [Unknown]
  - Sinusitis [Unknown]
